FAERS Safety Report 22150449 (Version 1)
Quarter: 2023Q1

REPORT INFORMATION
  Report Type: Report from Study
  Country: US (occurrence: US)
  Receive Date: 20230329
  Receipt Date: 20230329
  Transmission Date: 20230417
  Serious: No
  Sender: FDA-Public Use
  Company Number: US-002147023-NVSC2023US071694

PATIENT
  Age: 70 Year
  Sex: Male
  Weight: 67.13 kg

DRUGS (2)
  1. ATORVASTATIN CALCIUM [Suspect]
     Active Substance: ATORVASTATIN CALCIUM
     Indication: Psoriasis
     Dosage: 20 MG
     Route: 048
  2. CHOLECALCIFEROL [Suspect]
     Active Substance: CHOLECALCIFEROL
     Indication: Psoriasis
     Dosage: 50000 IU, QW
     Route: 065

REACTIONS (6)
  - Drug ineffective [Unknown]
  - Stool analysis abnormal [Unknown]
  - Psoriasis [Unknown]
  - Skin exfoliation [Unknown]
  - Nail pitting [Unknown]
  - Skin disorder [Unknown]

NARRATIVE: CASE EVENT DATE: 20230201
